FAERS Safety Report 7797130-3 (Version None)
Quarter: 2011Q4

REPORT INFORMATION
  Report Type: 
  Country: None (occurrence: None)
  Receive Date: 20111005
  Receipt Date: 20110927
  Transmission Date: 20120403
  Serious: Yes (Hospitalization)
  Sender: FDA-Public Use
  Company Number: DE-UCBSA-027905

PATIENT
  Sex: Female
  Weight: 130 kg

DRUGS (3)
  1. LAMOTRIGINE [Concomitant]
     Indication: EPILEPSY
     Route: 048
     Dates: start: 20100101
  2. VIMPAT [Suspect]
     Indication: EPILEPSY
     Route: 048
     Dates: start: 20100210
  3. TOPAMAX [Concomitant]
     Indication: EPILEPSY
     Route: 048
     Dates: start: 20100101

REACTIONS (1)
  - UMBILICAL HERNIA [None]
